FAERS Safety Report 8246051-0 (Version None)
Quarter: 2012Q1

REPORT INFORMATION
  Report Type: 
  Country: None (occurrence: None)
  Receive Date: 20120330
  Receipt Date: 20120322
  Transmission Date: 20120608
  Serious: Yes (Other)
  Sender: FDA-Public Use
  Company Number: US-PFIZER INC-2012078516

PATIENT
  Age: 39 Year
  Sex: Female

DRUGS (3)
  1. ORTHO-NOVUM 7/7/7-28 [Concomitant]
     Indication: CONTRACEPTION
  2. IBUPROFEN [Suspect]
     Dosage: UNK
     Route: 048
     Dates: start: 20040101
  3. ORTHO-NOVUM 7/7/7-28 [Concomitant]
     Indication: MENOPAUSE
     Route: 065

REACTIONS (1)
  - STEVENS-JOHNSON SYNDROME [None]
